FAERS Safety Report 6056431-X (Version None)
Quarter: 2009Q1

REPORT INFORMATION
  Report Type: 
  Country: None (occurrence: None)
  Receive Date: 20090126
  Receipt Date: 20090126
  Transmission Date: 20090719
  Serious: No
  Sender: FDA-Public Use
  Company Number: None

PATIENT
  Sex: Female

DRUGS (3)
  1. ZYPREXA [Suspect]
     Indication: SCHIZOAFFECTIVE DISORDER
     Dosage: 60 MG 2X DAY
     Dates: start: 19960101, end: 19990101
  2. RISPERDAL [Suspect]
     Dosage: 4 MG 2X DAY
     Dates: start: 19990101, end: 20020101
  3. HALDOL [Suspect]

REACTIONS (8)
  - ABNORMAL BEHAVIOUR [None]
  - DISCOMFORT [None]
  - HAEMATOCHEZIA [None]
  - PAIN [None]
  - SCREAMING [None]
  - SUICIDAL IDEATION [None]
  - VIOLENCE-RELATED SYMPTOM [None]
  - WEIGHT INCREASED [None]
